FAERS Safety Report 7751409-X (Version None)
Quarter: 2011Q3

REPORT INFORMATION
  Report Type: 
  Country: None (occurrence: None)
  Receive Date: 20110914
  Receipt Date: 20110906
  Transmission Date: 20111222
  Serious: Yes (Other)
  Sender: FDA-Public Use
  Company Number: US-PFIZER INC-2011209104

PATIENT
  Sex: Male
  Weight: 91 kg

DRUGS (8)
  1. HYDROMORPHONE [Concomitant]
     Dosage: 4 MG, UNK
  2. DIAZEPAM [Concomitant]
     Dosage: UNK, AS NEEDED
  3. PRILOSEC [Concomitant]
     Indication: DYSPEPSIA
     Dosage: UNK
  4. ZOFRAN [Concomitant]
     Dosage: UNK
  5. LYRICA [Suspect]
     Dosage: 100 MG, 3X/DAY
     Route: 048
     Dates: start: 20110906
  6. LYRICA [Suspect]
     Indication: NEUROPATHY PERIPHERAL
     Dosage: 100 MG, 3X/DAY
     Route: 048
     Dates: start: 20110701, end: 20110701
  7. ACYCLOVIR [Concomitant]
     Dosage: UNK
  8. CLONAZEPAM [Concomitant]
     Dosage: UNK, 1X/DAY

REACTIONS (5)
  - DIZZINESS [None]
  - DECREASED APPETITE [None]
  - EUPHORIC MOOD [None]
  - HEADACHE [None]
  - LYMPHOMA [None]
